FAERS Safety Report 9106986 (Version 2)
Quarter: 2013Q1

REPORT INFORMATION
  Report Type: Spontaneous
  Country: US (occurrence: US)
  Receive Date: 20130221
  Receipt Date: 20130326
  Transmission Date: 20140127
  Serious: Yes (Death, Hospitalization, Other)
  Sender: FDA-Public Use
  Company Number: US-BAXTER-2013BAX004769

PATIENT
  Sex: Male

DRUGS (2)
  1. DIANEAL LOW CALCIUM [Suspect]
     Indication: PERITONEAL DIALYSIS
     Route: 033
     Dates: start: 20121112, end: 20130316
  2. DIANEAL LOW CALCIUM [Suspect]
     Indication: PERITONEAL DIALYSIS
     Route: 033
     Dates: start: 20121112, end: 20130316

REACTIONS (5)
  - Neoplasm malignant [Fatal]
  - Adverse drug reaction [Recovering/Resolving]
  - Mental status changes [Recovering/Resolving]
  - Blood potassium increased [Unknown]
  - Blood sodium decreased [Unknown]
